FAERS Safety Report 23146604 (Version 1)
Quarter: 2023Q4

REPORT INFORMATION
  Report Type: Spontaneous
  Country: DE (occurrence: DE)
  Receive Date: 20231105
  Receipt Date: 20231105
  Transmission Date: 20240110
  Serious: Yes (Hospitalization, Other)
  Sender: FDA-Public Use
  Company Number: DE-EPICPHARMA-DE-2023EPCLIT01711

PATIENT
  Age: 5 Decade
  Sex: Female

DRUGS (8)
  1. CARBOPLATIN [Suspect]
     Active Substance: CARBOPLATIN
     Indication: Non-small cell lung cancer stage IV
     Dosage: AUC 6
     Route: 065
  2. PACLITAXEL [Suspect]
     Active Substance: PACLITAXEL
     Indication: Non-small cell lung cancer stage IV
     Route: 065
  3. PEMBROLIZUMAB [Suspect]
     Active Substance: PEMBROLIZUMAB
     Indication: Non-small cell lung cancer
     Dosage: FLAT DOSE
     Route: 065
     Dates: end: 202108
  4. BEVACIZUMAB [Suspect]
     Active Substance: BEVACIZUMAB
     Indication: Non-small cell lung cancer stage IV
     Route: 065
  5. BEVACIZUMAB [Suspect]
     Active Substance: BEVACIZUMAB
     Route: 065
  6. MEROPENEM [Concomitant]
     Active Substance: MEROPENEM
     Indication: Product used for unknown indication
     Route: 065
  7. VANCOMYCIN [Concomitant]
     Active Substance: VANCOMYCIN
     Indication: Product used for unknown indication
     Route: 065
  8. NOREPINEPHRINE [Concomitant]
     Active Substance: NOREPINEPHRINE
     Indication: Hypertension
     Route: 065

REACTIONS (2)
  - Aorto-oesophageal fistula [Unknown]
  - Drug ineffective for unapproved indication [Unknown]
